FAERS Safety Report 9746320 (Version 2)
Quarter: 2013Q4

REPORT INFORMATION
  Report Type: Spontaneous
  Country: IT (occurrence: None)
  Receive Date: 20131205
  Receipt Date: 20131211
  Transmission Date: 20140711
  Serious: Yes (Other)
  Sender: FDA-Public Use
  Company Number: AUR-APL-2013-10064

PATIENT
  Age: 72 Year
  Sex: Male

DRUGS (11)
  1. BISOPROLOL (BISOPROLOL) [Suspect]
     Indication: PRODUCT USED FOR UNKNOWN INDICATION
  2. OMEPRAZOLE (OMEPRAZOLE) [Suspect]
     Indication: PRODUCT USED FOR UNKNOWN INDICATION
  3. SERTRALINE (SERTRALINE) [Suspect]
     Indication: ABNORMAL BEHAVIOUR
  4. VALSARTAN [Suspect]
     Indication: PRODUCT USED FOR UNKNOWN INDICATION
  5. FUROSEMIDE (FUROSEMIDE) [Suspect]
     Indication: DIURETIC THERAPY
     Dates: start: 201202
  6. ATORVASTATIN CALCIUM (ATORVASTATIN CALCIUM) [Suspect]
     Indication: HYPERCHOLESTEROLAEMIA
     Dates: start: 201202
  7. NITROGLYCERIN [Suspect]
     Indication: PRODUCT USED FOR UNKNOWN INDICATION
     Route: 062
  8. RANOLAZINE [Suspect]
     Indication: ANGINA PECTORIS
     Dates: start: 201107
  9. ACETYLSALICYLIC ACID (ACETYLSALICYLIC ACID) [Suspect]
     Indication: PRODUCT USED FOR UNKNOWN INDICATION
     Dates: start: 201107
  10. ALLOPURINOL [Suspect]
     Indication: PRODUCT USED FOR UNKNOWN INDICATION
  11. QUETIAPINE FUMARATE (QUETIAPINE FUMARATE) [Suspect]
     Indication: ABNORMAL BEHAVIOUR

REACTIONS (6)
  - Rhabdomyolysis [None]
  - Drug interaction [None]
  - Fall [None]
  - Nausea [None]
  - Vomiting [None]
  - Malaise [None]
